FAERS Safety Report 17543216 (Version 1)
Quarter: 2020Q1

REPORT INFORMATION
  Report Type: Spontaneous
  Country: FR (occurrence: FR)
  Receive Date: 20200316
  Receipt Date: 20200316
  Transmission Date: 20200409
  Serious: Yes (Other)
  Sender: FDA-Public Use
  Company Number: FR-BRISTOL-MYERS SQUIBB COMPANY-BMS-2020-021315

PATIENT
  Age: 93 Year
  Sex: Female
  Weight: 51.8 kg

DRUGS (5)
  1. FUROSEMIDE. [Suspect]
     Active Substance: FUROSEMIDE
     Indication: CARDIAC FAILURE
     Dosage: 20 MILLIGRAM, DAILY
     Route: 048
  2. BISOPROLOL [Suspect]
     Active Substance: BISOPROLOL
     Indication: CARDIAC FAILURE
     Dosage: 10 MILLIGRAM, DAILY
     Route: 048
  3. MACROGOL [Suspect]
     Active Substance: POLYETHYLENE GLYCOLS
     Indication: CONSTIPATION
     Dosage: UNK
     Route: 048
  4. ELIQUIS [Suspect]
     Active Substance: APIXABAN
     Indication: CEREBROVASCULAR ACCIDENT PROPHYLAXIS
     Dosage: 2 DOSAGE FORM. DAILY
     Route: 048
     Dates: start: 201910
  5. AMIODARONE [Suspect]
     Active Substance: AMIODARONE
     Indication: ATRIAL FIBRILLATION
     Dosage: 200 MILLIGRAM DAILY
     Route: 048
     Dates: start: 201910

REACTIONS (3)
  - Irregular sleep wake rhythm disorder [Unknown]
  - Confusional state [Unknown]
  - Hallucination [Unknown]

NARRATIVE: CASE EVENT DATE: 20191105
